FAERS Safety Report 4475843-9 (Version None)
Quarter: 2004Q3

REPORT INFORMATION
  Report Type: 
  Country: None (occurrence: None)
  Receive Date: 20040923
  Receipt Date: 20040722
  Transmission Date: 20050211
  Serious: No
  Sender: FDA-Public Use
  Company Number: USA040772234

PATIENT
  Age: 67 Year
  Sex: Female
  Weight: 45 kg

DRUGS (2)
  1. FORTEO [Suspect]
     Indication: OSTEOPOROSIS
     Dosage: 20 UG/1 DAY
     Dates: start: 20040601
  2. CALCIUM WITH VITAMIN D [Concomitant]

REACTIONS (6)
  - DIZZINESS [None]
  - HEART RATE INCREASED [None]
  - INJECTION SITE BURNING [None]
  - INSOMNIA [None]
  - PAIN [None]
  - WEIGHT DECREASED [None]
